FAERS Safety Report 9315981 (Version 8)
Quarter: 2014Q2

REPORT INFORMATION
  Report Type: Spontaneous
  Country: US (occurrence: US)
  Receive Date: 20130530
  Receipt Date: 20140404
  Transmission Date: 20141212
  Serious: Yes (Hospitalization)
  Sender: FDA-Public Use
  Company Number: US-BIOGENIDEC-2013BI047428

PATIENT
  Age: 69 Year
  Sex: Female

DRUGS (3)
  1. AVONEX [Suspect]
     Indication: MULTIPLE SCLEROSIS
     Route: 030
  2. AVONEX [Suspect]
     Indication: MULTIPLE SCLEROSIS
     Route: 030
     Dates: start: 20050706, end: 20140319
  3. AVONEX [Suspect]
     Indication: MULTIPLE SCLEROSIS
     Route: 030
     Dates: start: 20140319

REACTIONS (10)
  - Cerebrovascular accident [Recovered/Resolved]
  - Feeling abnormal [Unknown]
  - Memory impairment [Not Recovered/Not Resolved]
  - Feeling cold [Unknown]
  - Cognitive disorder [Unknown]
  - Hypersomnia [Recovered/Resolved]
  - Amnesia [Unknown]
  - Asthenia [Unknown]
  - Fatigue [Unknown]
  - Anxiety [Unknown]
